FAERS Safety Report 7926316-X (Version None)
Quarter: 2011Q4

REPORT INFORMATION
  Report Type: 
  Country: None (occurrence: None)
  Receive Date: 20111118
  Receipt Date: 20111108
  Transmission Date: 20120403
  Serious: No
  Sender: FDA-Public Use
  Company Number: US-BIOGENIDEC-2010BI039977

PATIENT
  Age: 38 Year
  Sex: Female

DRUGS (2)
  1. AVONEX [Concomitant]
     Indication: MULTIPLE SCLEROSIS
     Route: 030
  2. TYSABRI [Suspect]
     Indication: MULTIPLE SCLEROSIS
     Route: 042
     Dates: start: 20100902

REACTIONS (14)
  - MOBILITY DECREASED [None]
  - HYPOAESTHESIA [None]
  - CONFUSIONAL STATE [None]
  - BALANCE DISORDER [None]
  - DEPRESSION [None]
  - URINARY TRACT INFECTION [None]
  - PARAESTHESIA [None]
  - DRUG RESISTANCE [None]
  - DRUG EFFECT DECREASED [None]
  - MIGRAINE [None]
  - FRUSTRATION [None]
  - FATIGUE [None]
  - COGNITIVE DISORDER [None]
  - DIZZINESS [None]
